FAERS Safety Report 23928892 (Version 1)
Quarter: 2024Q2

REPORT INFORMATION
  Report Type: Spontaneous
  Country: US (occurrence: US)
  Receive Date: 20240531
  Receipt Date: 20240531
  Transmission Date: 20240716
  Serious: Yes (Other)
  Sender: FDA-Public Use
  Company Number: US-MALLINCKRODT-MNK202403636

PATIENT
  Age: 65 Year
  Sex: Male
  Weight: 62 kg

DRUGS (4)
  1. AMITIZA [Suspect]
     Active Substance: LUBIPROSTONE
     Indication: Constipation
     Dosage: UNKNOWN
     Dates: start: 2016, end: 2017
  2. MOTEGRITY [Suspect]
     Active Substance: PRUCALOPRIDE SUCCINATE
     Indication: Constipation
     Route: 048
  3. DIAZEPAM [Concomitant]
     Active Substance: DIAZEPAM
     Indication: Muscle relaxant therapy
     Dosage: UNKNOWN
  4. POLYETHYLENE GLYCOL 3350 [Concomitant]
     Active Substance: POLYETHYLENE GLYCOL 3350
     Indication: Constipation
     Dosage: UNKNOWN

REACTIONS (20)
  - Neuropathy peripheral [Unknown]
  - Paraesthesia [Unknown]
  - Pain [Unknown]
  - Blood glucose decreased [Unknown]
  - Hunger [Unknown]
  - Hyperphagia [Unknown]
  - Feeling jittery [Unknown]
  - Pallor [Unknown]
  - Pain in extremity [Unknown]
  - Asthenia [Unknown]
  - Somnolence [Unknown]
  - Stress [Unknown]
  - Anxiety [Unknown]
  - Tremor [Unknown]
  - Dizziness [Unknown]
  - Headache [Unknown]
  - Diarrhoea [Unknown]
  - Presyncope [Unknown]
  - Abdominal discomfort [Recovered/Resolved]
  - Drug ineffective [Unknown]
